FAERS Safety Report 5570056-1 (Version None)
Quarter: 2007Q4

REPORT INFORMATION
  Report Type: 
  Country: None (occurrence: None)
  Receive Date: 20071220
  Receipt Date: 20071213
  Transmission Date: 20080405
  Serious: Yes (Other)
  Sender: FDA-Public Use
  Company Number: GB-PFIZER INC-2007105494

PATIENT
  Age: 41 Year
  Sex: Male
  Weight: 90.45 kg

DRUGS (3)
  1. CHANTIX [Suspect]
     Indication: SMOKING CESSATION THERAPY
     Dosage: TEXT:500UG-FREQ:DAILY
     Route: 048
     Dates: start: 20071122, end: 20071122
  2. FLUOXETINE HYDROCHLORIDE [Concomitant]
     Indication: DEPRESSION
  3. ZOPICLONE [Concomitant]
     Indication: ANXIETY

REACTIONS (1)
  - LOSS OF CONSCIOUSNESS [None]
